FAERS Safety Report 21551825 (Version 7)
Quarter: 2023Q4

REPORT INFORMATION
  Report Type: Report from Study
  Country: CA (occurrence: CA)
  Receive Date: 20221104
  Receipt Date: 20231019
  Transmission Date: 20240110
  Serious: Yes (Other)
  Sender: FDA-Public Use
  Company Number: CA-002147023-NVSC2022CA245922

PATIENT
  Age: 49 Year
  Sex: Male

DRUGS (6)
  1. COSENTYX [Suspect]
     Active Substance: SECUKINUMAB
     Indication: Ankylosing spondylitis
     Dosage: UNK
     Route: 058
     Dates: start: 20221013
  2. COSENTYX [Suspect]
     Active Substance: SECUKINUMAB
     Dosage: 150 MG, QW, (WEEKS 0, 1, 2, 3, AND 4)
     Route: 058
     Dates: start: 20221014
  3. COSENTYX [Suspect]
     Active Substance: SECUKINUMAB
     Dosage: 150 MG, QMO
     Route: 058
  4. COSENTYX [Suspect]
     Active Substance: SECUKINUMAB
     Dosage: (LAST INJECTION)
     Route: 058
     Dates: start: 20221028
  5. CORTISONE [Concomitant]
     Active Substance: CORTISONE
     Indication: Product used for unknown indication
     Dosage: UNK
     Route: 042
     Dates: start: 2022, end: 2022
  6. DILAUDID [Concomitant]
     Active Substance: HYDROMORPHONE HYDROCHLORIDE
     Indication: Surgery
     Dosage: PRN
     Route: 048
     Dates: start: 20221028

REACTIONS (11)
  - Nephrolithiasis [Unknown]
  - Musculoskeletal stiffness [Unknown]
  - Dysstasia [Unknown]
  - General physical health deterioration [Unknown]
  - Arthralgia [Unknown]
  - Neck pain [Unknown]
  - Back pain [Unknown]
  - Sacral pain [Unknown]
  - Fatigue [Unknown]
  - Joint swelling [Unknown]
  - Discomfort [Unknown]

NARRATIVE: CASE EVENT DATE: 20221028
